FAERS Safety Report 6489083-5 (Version None)
Quarter: 2009Q4

REPORT INFORMATION
  Report Type: 
  Country: None (occurrence: None)
  Receive Date: 20091207
  Receipt Date: 20091124
  Transmission Date: 20100525
  Serious: Yes (Other)
  Sender: FDA-Public Use
  Company Number: ISPH-2009-0438

PATIENT
  Age: 55 Year
  Sex: Male

DRUGS (3)
  1. AZASITE [Suspect]
     Indication: DRUG USE FOR UNKNOWN INDICATION
     Dosage: OPHTHALMIC
     Route: 047
  2. AZOPT [Concomitant]
  3. TRAVATAN [Concomitant]

REACTIONS (1)
  - INTRAOCULAR PRESSURE INCREASED [None]
